FAERS Safety Report 15068319 (Version 1)
Quarter: 2018Q2

REPORT INFORMATION
  Report Type: Spontaneous
  Country: US (occurrence: US)
  Receive Date: 20180626
  Receipt Date: 20180626
  Transmission Date: 20180711
  Serious: Yes (Other)
  Sender: FDA-Public Use
  Company Number: US-009507513-1708USA006700

PATIENT
  Age: 36 Year
  Sex: Female
  Weight: 160.54 kg

DRUGS (2)
  1. NEXPLANON [Suspect]
     Active Substance: ETONOGESTREL
     Dosage: 1 IMPLANT, A LITTLE OVER 3 YEARS
     Route: 059
  2. NEXPLANON [Suspect]
     Active Substance: ETONOGESTREL
     Dosage: 1 DF, UNK
     Route: 059
     Dates: start: 20171115, end: 20180416

REACTIONS (5)
  - Vaginal haemorrhage [Unknown]
  - Complication of device removal [Recovered/Resolved]
  - Device kink [Recovered/Resolved]
  - Incorrect drug administration duration [Unknown]
  - General anaesthesia [Recovered/Resolved]

NARRATIVE: CASE EVENT DATE: 20180405
